FAERS Safety Report 8851952 (Version 2)
Quarter: 2012Q4

REPORT INFORMATION
  Report Type: 
  Country: US (occurrence: US)
  Receive Date: 20121022
  Receipt Date: 20121108
  Transmission Date: 20130627
  Serious: Yes (Hospitalization, Other)
  Sender: FDA-Public Use
  Company Number: US-BRISTOL-MYERS SQUIBB COMPANY-17035353

PATIENT
  Age: 70 Year
  Sex: Male

DRUGS (12)
  1. YERVOY [Suspect]
     Indication: METASTASES TO CENTRAL NERVOUS SYSTEM
     Dosage: Last dose: 19Jun2012.
     Route: 042
     Dates: start: 20120419
  2. ASPIRIN [Concomitant]
  3. TRICOR [Concomitant]
  4. NEURONTIN [Concomitant]
  5. KEPPRA [Concomitant]
  6. LANTUS [Concomitant]
  7. OMEPRAZOLE [Concomitant]
  8. FLOMAX [Concomitant]
  9. LOPRESSOR [Concomitant]
  10. PRINIVIL [Concomitant]
  11. HUMALOG [Concomitant]
  12. CRESTOR [Concomitant]

REACTIONS (4)
  - Encephalopathy [Unknown]
  - Pyrexia [Unknown]
  - Haematemesis [Unknown]
  - Hypertension [Unknown]
